FAERS Safety Report 7522030-3 (Version None)
Quarter: 2011Q2

REPORT INFORMATION
  Report Type: 
  Country: None (occurrence: None)
  Receive Date: 20110603
  Receipt Date: 20110524
  Transmission Date: 20111010
  Serious: Yes (Death, Hospitalization, Other)
  Sender: FDA-Public Use
  Company Number: US-CELGENEUS-163-21880-11053182

PATIENT
  Age: 71 Year
  Sex: Female

DRUGS (9)
  1. REVLIMID [Suspect]
     Indication: MULTIPLE MYELOMA
     Dosage: 15 MILLIGRAM
     Route: 048
     Dates: start: 20101001, end: 20100101
  2. TACROLIMUS [Concomitant]
     Route: 065
  3. MIRTAZAPINE [Concomitant]
     Route: 065
  4. DEXAMETHASONE [Concomitant]
     Indication: MULTIPLE MYELOMA
     Route: 065
     Dates: start: 20101001
  5. ZOLPIDEM [Concomitant]
     Route: 065
  6. LOPERAMIDE [Concomitant]
     Route: 065
  7. VITAMIN B COMPLEX CAP [Concomitant]
     Route: 065
  8. OCTREOTIDE ACETATE [Concomitant]
     Route: 065
  9. VELCADE [Concomitant]
     Indication: MULTIPLE MYELOMA
     Route: 065
     Dates: start: 20101001

REACTIONS (6)
  - DECREASED APPETITE [None]
  - RENAL FAILURE ACUTE [None]
  - SEPSIS [None]
  - ACUTE MYOCARDIAL INFARCTION [None]
  - DIARRHOEA [None]
  - DEATH [None]
